FAERS Safety Report 4982212-1 (Version None)
Quarter: 2006Q2

REPORT INFORMATION
  Report Type: 
  Country: None (occurrence: None)
  Receive Date: 20060421
  Receipt Date: 20060410
  Transmission Date: 20061013
  Serious: Yes (Death, Other)
  Sender: FDA-Public Use
  Company Number: 26629

PATIENT
  Age: 81 Year
  Sex: Male

DRUGS (1)
  1. PACLITAXEL INJ. 30MG/5ML - BEDFORD LABS, INC. [Suspect]
     Indication: LUNG NEOPLASM MALIGNANT
     Dates: start: 20060404

REACTIONS (2)
  - GASTROINTESTINAL HAEMORRHAGE [None]
  - PULMONARY HAEMORRHAGE [None]
